FAERS Safety Report 4902284-X (Version None)
Quarter: 2006Q1

REPORT INFORMATION
  Report Type: 
  Country: None (occurrence: None)
  Receive Date: 20060202
  Receipt Date: 20060202
  Transmission Date: 20060701
  Serious: Yes (Hospitalization)
  Sender: FDA-Public Use
  Company Number: None

PATIENT
  Age: 54 Year
  Sex: Female

DRUGS (11)
  1. LOTREL [Suspect]
     Indication: HYPERTENSION
     Dosage: ONE CAPSULE DAILY PO
     Route: 048
  2. TOPROL-XL [Suspect]
     Indication: HYPERTENSION
     Dosage: 100 MG DAILY PO
     Route: 048
  3. PREMARIN [Concomitant]
  4. PROTONIX [Concomitant]
  5. PLAVIX [Concomitant]
  6. PRAVASTATIN [Concomitant]
  7. DONNATAL [Concomitant]
  8. METOCLOPRAMIDE [Concomitant]
  9. TOPAMAX [Concomitant]
  10. HYDROCHLOROTHIAZIDE [Concomitant]
  11. LEXAPRO [Concomitant]

REACTIONS (6)
  - ANGIONEUROTIC OEDEMA [None]
  - CHEST PAIN [None]
  - DYSPNOEA [None]
  - LUNG DISORDER [None]
  - PHARYNGEAL OEDEMA [None]
  - WHEEZING [None]
